FAERS Safety Report 6088930-9 (Version None)
Quarter: 2009Q1

REPORT INFORMATION
  Report Type: 
  Country: None (occurrence: None)
  Receive Date: 20090224
  Receipt Date: 20090121
  Transmission Date: 20090719
  Serious: No
  Sender: FDA-Public Use
  Company Number: US-BAYER-200910232BCC

PATIENT
  Age: 69 Year
  Sex: Male
  Weight: 98 kg

DRUGS (9)
  1. ALEVE (CAPLET) [Suspect]
     Indication: ARTHRALGIA
     Dosage: TOTAL DAILY DOSE: 2220 MG  UNIT DOSE: 220 MG
     Route: 048
     Dates: start: 20081201, end: 20090120
  2. LABETALOL HCL [Concomitant]
  3. LISINOPRIL [Concomitant]
  4. VYTORIN [Concomitant]
  5. FOLIC ACID [Concomitant]
  6. ALLOPURINOL [Concomitant]
  7. CVS BRAND ASPIRIN [Concomitant]
  8. SPECTRAVITE SR MULTIVITAMIN [Concomitant]
  9. FISH OIL CONCENTRATE [Concomitant]

REACTIONS (1)
  - HOT FLUSH [None]
